FAERS Safety Report 6239305-0 (Version None)
Quarter: 2009Q2

REPORT INFORMATION
  Report Type: 
  Country: None (occurrence: None)
  Receive Date: 20090622
  Receipt Date: 20090616
  Transmission Date: 20091009
  Serious: Yes (Hospitalization)
  Sender: FDA-Public Use
  Company Number: PHHO2007NO06391

PATIENT
  Sex: Female
  Weight: 64.5 kg

DRUGS (5)
  1. ZOLEDRONIC ACID [Suspect]
     Indication: OSTEOPOROSIS POSTMENOPAUSAL
     Dosage: DOUBLE-BLIND
     Route: 042
     Dates: start: 20060317
  2. CALCIUM [Concomitant]
     Indication: OSTEOPOROSIS POSTMENOPAUSAL
  3. VITAMIN D [Concomitant]
     Indication: OSTEOPOROSIS POSTMENOPAUSAL
  4. EVISTA [Concomitant]
     Indication: OSTEOPOROSIS
     Dosage: 60 MG, UNK
     Route: 048
     Dates: start: 20010116
  5. MODURETIC MITE [Concomitant]
     Indication: HYPERTENSION
     Dosage: 1 TABLET
     Route: 048
     Dates: start: 20070319, end: 20070319

REACTIONS (5)
  - ABDOMINAL DISTENSION [None]
  - BLOOD OSMOLARITY DECREASED [None]
  - HEADACHE [None]
  - HYPONATRAEMIA [None]
  - THIRST [None]
